FAERS Safety Report 23674730 (Version 3)
Quarter: 2024Q2

REPORT INFORMATION
  Report Type: Report from Study
  Country: US (occurrence: US)
  Receive Date: 20240326
  Receipt Date: 20240405
  Transmission Date: 20240716
  Serious: Yes (Other)
  Sender: FDA-Public Use
  Company Number: US-MYOVANT SCIENCES GMBH-2024MYSCI0200949

PATIENT
  Age: 61 Year
  Sex: Male

DRUGS (3)
  1. PANTOPRAZOLE [Suspect]
     Active Substance: PANTOPRAZOLE
     Dosage: UNK
     Route: 065
  2. ORGOVYX [Suspect]
     Active Substance: RELUGOLIX
     Indication: Prostate cancer
     Dosage: 360 MILLIGRAM, SINGLE
     Route: 048
     Dates: start: 20230502, end: 20230502
  3. ORGOVYX [Suspect]
     Active Substance: RELUGOLIX
     Dosage: 120 MILLIGRAM, QD
     Route: 048
     Dates: start: 20230503

REACTIONS (13)
  - Seizure [Unknown]
  - Loss of consciousness [Recovered/Resolved]
  - Mood swings [Unknown]
  - Productive cough [Unknown]
  - Tremor [Unknown]
  - Dyspnoea [Unknown]
  - Eye pain [Unknown]
  - Muscle spasms [Unknown]
  - Headache [Unknown]
  - Abdominal discomfort [Unknown]
  - Dizziness [Unknown]
  - Fatigue [Unknown]
  - Asthenia [Unknown]
